FAERS Safety Report 5510376-X (Version None)
Quarter: 2007Q4

REPORT INFORMATION
  Report Type: 
  Country: None (occurrence: None)
  Receive Date: 20071108
  Receipt Date: 20051201
  Transmission Date: 20080405
  Serious: Yes (Hospitalization)
  Sender: FDA-Public Use
  Company Number: US-PFIZER INC-2003164414US

PATIENT
  Sex: Male
  Weight: 85 kg

DRUGS (19)
  1. CELECOXIB [Suspect]
     Indication: COLORECTAL CANCER METASTATIC
     Dosage: DAILY DOSE:400MG
     Route: 048
  2. IRINOTECAN HCL [Suspect]
     Indication: COLORECTAL CANCER METASTATIC
     Dosage: DAILY DOSE:250MG/M2-FREQ:CYCLIC
     Route: 042
  3. XELODA [Suspect]
     Indication: COLORECTAL CANCER METASTATIC
     Dosage: DAILY DOSE:750MG/M2
     Route: 048
  4. ANZEMET [Concomitant]
  5. CUMADIN [Concomitant]
  6. COMPAZINE [Concomitant]
  7. VITAMIN B6 [Concomitant]
  8. LOPERAMIDE HCL [Concomitant]
  9. LANOXIN [Concomitant]
  10. FUROSEMIDE [Concomitant]
  11. VERAPAMIL [Concomitant]
  12. TAMSULOSIN HYDROCHLORIDE [Concomitant]
  13. PAXIL [Concomitant]
  14. PRAVACHOL [Concomitant]
  15. AMBIEN [Concomitant]
  16. POTASSIUM CHLORIDE [Concomitant]
  17. DIFLUCAN [Concomitant]
  18. XANAX [Concomitant]
  19. LISINOPRIL [Concomitant]

REACTIONS (2)
  - DEHYDRATION [None]
  - DIARRHOEA [None]
